FAERS Safety Report 22255166 (Version 1)
Quarter: 2023Q2

REPORT INFORMATION
  Report Type: Spontaneous
  Country: US (occurrence: US)
  Receive Date: 20230426
  Receipt Date: 20230426
  Transmission Date: 20230721
  Serious: No
  Sender: FDA-Public Use
  Company Number: US-GLAXOSMITHKLINE-USCH2023017698

PATIENT

DRUGS (1)
  1. FLUTICASONE [Suspect]
     Active Substance: FLUTICASONE
     Indication: Product used for unknown indication
     Dosage: UNK

REACTIONS (7)
  - Panic attack [Unknown]
  - Pruritus [Unknown]
  - Erythema [Unknown]
  - Throat tightness [Unknown]
  - Dysphagia [Unknown]
  - Chest discomfort [Unknown]
  - Derealisation [Unknown]
